FAERS Safety Report 4489371-8 (Version None)
Quarter: 2004Q4

REPORT INFORMATION
  Report Type: 
  Country: None (occurrence: None)
  Receive Date: 20041029
  Receipt Date: 20041022
  Transmission Date: 20050328
  Serious: Yes (Hospitalization, Other)
  Sender: FDA-Public Use
  Company Number: US-MERCK-0410USA03838

PATIENT
  Age: 35 Year
  Sex: Male

DRUGS (3)
  1. CANCIDAS [Suspect]
     Indication: ENDOCARDITIS CANDIDA
     Route: 042
     Dates: start: 20031101, end: 20040101
  2. CANCIDAS [Suspect]
     Route: 042
     Dates: start: 20040101, end: 20040326
  3. MEDICINALPRODUCT NOT SPECIFIED BY SENDER [Suspect]
     Route: 065

REACTIONS (13)
  - ABSCESS [None]
  - BRAIN ABSCESS [None]
  - CEREBRAL INFARCTION [None]
  - DIPLOPIA [None]
  - EMBOLIC STROKE [None]
  - ENDOCARDITIS CANDIDA [None]
  - FUNGAL INFECTION [None]
  - HEADACHE [None]
  - HYDROCEPHALUS [None]
  - MYOCARDIAC ABSCESS [None]
  - RENAL FAILURE [None]
  - SURGICAL PROCEDURE REPEATED [None]
  - THERAPY NON-RESPONDER [None]
